FAERS Safety Report 15951114 (Version 1)
Quarter: 2019Q1

REPORT INFORMATION
  Report Type: Spontaneous
  Country: IL (occurrence: IL)
  Receive Date: 20190212
  Receipt Date: 20190212
  Transmission Date: 20190417
  Serious: Yes (Hospitalization)
  Sender: FDA-Public Use
  Company Number: IL-TEVA-2019-IL-1011582

PATIENT
  Age: 68 Year
  Sex: Female

DRUGS (19)
  1. TRITACE TAB 2.5 MG [Concomitant]
     Route: 065
  2. COUMADIN SODIUM TAB 5MG [Concomitant]
     Route: 065
  3. FOLIC ACID TAB 5MG [Concomitant]
     Route: 065
  4. LOSARDEX TAB 50 MG [Concomitant]
     Route: 065
  5. SPIRONOLACTONE TAB 25MG [Concomitant]
     Route: 065
  6. CIPRALEX TAB 20MG [Concomitant]
     Route: 065
  7. BONDORMIN TAB 0.25MG [Concomitant]
     Route: 065
  8. CARDILOC TAB 5MG [Concomitant]
     Route: 065
  9. ELATROLET TAB 10MG [Concomitant]
     Route: 065
  10. REPAGLINIDE TEVA TAB 0.5 MG [Concomitant]
     Route: 065
  11. FUSID (FUROSEMIDE) [Suspect]
     Active Substance: FUROSEMIDE
     Indication: HYPERTENSION
     Route: 065
  12. GLUCOMIN 850MG [Concomitant]
     Route: 064
  13. OMEPRADEX CPL 20 MG [Concomitant]
     Route: 065
  14. FERRIFOL TAB CF [Concomitant]
     Dosage: CF
     Route: 065
  15. MIRTAZAPINE TAB 30 MG [Concomitant]
     Route: 065
  16. ELTROXIN TAB 100 MCG [Concomitant]
     Dosage: 100 MCG
     Route: 065
  17. INS LEVEMIR CRT [Concomitant]
     Dosage: CRT
     Route: 065
  18. INS NOVORAPID [Concomitant]
     Dosage: 100 IU/1ML
     Route: 065
  19. SIMVASTATIN. [Concomitant]
     Active Substance: SIMVASTATIN
     Route: 065

REACTIONS (1)
  - Renal failure [Unknown]
